FAERS Safety Report 6112566-4 (Version None)
Quarter: 2009Q1

REPORT INFORMATION
  Report Type: 
  Country: None (occurrence: None)
  Receive Date: 20090310
  Receipt Date: 20081202
  Transmission Date: 20090719
  Serious: Yes (Death)
  Sender: FDA-Public Use
  Company Number: 2008S1021514

PATIENT
  Age: 14 Year
  Sex: Female

DRUGS (1)
  1. ONDANSETRON HCL [Suspect]
     Indication: VOMITING
     Dosage: 4 MG;ONCE; INTRAMUSCULAR
     Route: 030

REACTIONS (6)
  - ALTERED STATE OF CONSCIOUSNESS [None]
  - CREPITATIONS [None]
  - DIZZINESS [None]
  - SHOCK [None]
  - VENTRICULAR FIBRILLATION [None]
  - VENTRICULAR TACHYCARDIA [None]
